FAERS Safety Report 26145787 (Version 1)
Quarter: 2025Q4

REPORT INFORMATION
  Report Type: Spontaneous
  Country: US (occurrence: US)
  Receive Date: 20251211
  Receipt Date: 20251211
  Transmission Date: 20260117
  Serious: No
  Sender: SANOFI AVENTIS
  Company Number: US-SA-2025SA367969

PATIENT
  Sex: Female
  Weight: 90.91 kg

DRUGS (6)
  1. DUPIXENT [Suspect]
     Active Substance: DUPILUMAB
     Indication: Neurodermatitis
     Dosage: 300 MG, QOW
     Route: 058
  2. CYANOCOBALAMIN [Concomitant]
     Active Substance: CYANOCOBALAMIN
  3. PHENTERMINE HYDROCHLORIDE [Concomitant]
     Active Substance: PHENTERMINE HYDROCHLORIDE
  4. ESCITALOPRAM OXALATE [Concomitant]
     Active Substance: ESCITALOPRAM OXALATE
  5. PROGESTERONE [Concomitant]
     Active Substance: PROGESTERONE
  6. ESTRADIOL [Concomitant]
     Active Substance: ESTRADIOL

REACTIONS (3)
  - Scratch [Unknown]
  - Pruritus [Unknown]
  - Injection site pain [Recovered/Resolved]
